FAERS Safety Report 24595420 (Version 5)
Quarter: 2025Q1

REPORT INFORMATION
  Report Type: Spontaneous
  Country: CA (occurrence: CA)
  Receive Date: 20241109
  Receipt Date: 20250102
  Transmission Date: 20250409
  Serious: Yes (Hospitalization)
  Sender: CELLTRION
  Company Number: CA-PFIZER INC-202400290233

PATIENT

DRUGS (1)
  1. INFLECTRA [Suspect]
     Active Substance: INFLIXIMAB-DYYB
     Indication: Colitis ulcerative
     Route: 042
     Dates: start: 20241028

REACTIONS (9)
  - Inflammation [Recovering/Resolving]
  - Pyrexia [Recovering/Resolving]
  - Erythema [Recovering/Resolving]
  - Eye discharge [Recovering/Resolving]
  - Ear infection [Recovering/Resolving]
  - Ear discomfort [Recovering/Resolving]
  - Malaise [Recovering/Resolving]
  - Blepharitis [Not Recovered/Not Resolved]
  - Off label use [Unknown]

NARRATIVE: CASE EVENT DATE: 20240101
